FAERS Safety Report 8344719-9 (Version None)
Quarter: 2012Q2

REPORT INFORMATION
  Report Type: 
  Country: None (occurrence: None)
  Receive Date: 20120508
  Receipt Date: 20120427
  Transmission Date: 20120825
  Serious: Yes (Other)
  Sender: FDA-Public Use
  Company Number: JP-ROCHE-711007

PATIENT
  Age: 66 Year
  Sex: Female

DRUGS (16)
  1. MABTHERA [Suspect]
     Indication: B-CELL LYMPHOMA
     Dosage: 250 MG/M2, SINGLE
     Route: 042
  2. CYCLOPHOSPHAMIDE [Suspect]
     Indication: PRODUCT USED FOR UNKNOWN INDICATION
  3. PREDNISOLONE [Suspect]
     Indication: PRODUCT USED FOR UNKNOWN INDICATION
  4. ADONA [Concomitant]
     Indication: PROPHYLAXIS
     Dosage: 90 MG, QD
     Route: 048
     Dates: start: 20090319, end: 20090410
  5. MITOXANTRONE HYDROCHLORIDE [Suspect]
     Indication: PRODUCT USED FOR UNKNOWN INDICATION
  6. IBRITUMOMAB TIUXETAN [Suspect]
     Dosage: 130 MBQ, SINGLE
     Route: 042
  7. VINCRISTINE [Suspect]
     Indication: PRODUCT USED FOR UNKNOWN INDICATION
  8. CLADRIBINE [Suspect]
     Indication: PRODUCT USED FOR UNKNOWN INDICATION
  9. MUCOSTA [Concomitant]
     Indication: PROPHYLAXIS
     Dosage: 300 MG, QD
     Route: 048
  10. BASEN [Concomitant]
     Indication: DIABETES MELLITUS
     Dosage: 0.9 MG, QD
     Route: 048
  11. ACETAMINOPHEN [Concomitant]
     Indication: PROPHYLAXIS
     Dosage: 400 MG, SINGLE
     Route: 048
  12. AMARYL [Concomitant]
     Indication: DIABETES MELLITUS
     Dosage: 0.5 MG, QD
     Route: 048
  13. LOSARTAN POTASSIUM [Concomitant]
     Indication: HYPERTENSION
     Dosage: 50 MG, QD
     Route: 048
  14. ALLEGRA [Concomitant]
     Indication: PROPHYLAXIS
     Dosage: 60 MG, SINGLE
     Route: 048
  15. IBRITUMOMAB TIUXETAN [Suspect]
     Indication: B-CELL LYMPHOMA
     Dosage: 11.1 MBQ/KG, UNK
     Route: 042
  16. DOXORUBICIN HCL [Suspect]
     Indication: PRODUCT USED FOR UNKNOWN INDICATION

REACTIONS (3)
  - WHITE BLOOD CELL COUNT DECREASED [None]
  - MYELODYSPLASTIC SYNDROME [None]
  - PLATELET COUNT DECREASED [None]
